FAERS Safety Report 25239415 (Version 1)
Quarter: 2025Q2

REPORT INFORMATION
  Report Type: Other
  Country: US (occurrence: US)
  Receive Date: 20250425
  Receipt Date: 20250425
  Transmission Date: 20250717
  Serious: No
  Sender: KNIGHT THERAPEUTICS
  Company Number: US-Knight Therapeutics (USA) Inc.-2175561

PATIENT
  Age: 35 Year
  Sex: Male

DRUGS (2)
  1. IMPAVIDO [Suspect]
     Active Substance: MILTEFOSINE
     Indication: Mucocutaneous leishmaniasis
  2. IMIQUIMOD [Concomitant]
     Active Substance: IMIQUIMOD

REACTIONS (2)
  - Drug ineffective [Unknown]
  - Intentional product use issue [Unknown]
